FAERS Safety Report 5845141-7 (Version None)
Quarter: 2008Q3

REPORT INFORMATION
  Report Type: 
  Country: None (occurrence: None)
  Receive Date: 20080813
  Receipt Date: 20080813
  Transmission Date: 20090109
  Serious: No
  Sender: FDA-Public Use
  Company Number: None

PATIENT
  Age: 67 Year
  Sex: Male
  Weight: 97.5234 kg

DRUGS (1)
  1. ANDRODERM [Suspect]
     Indication: BLOOD TESTOSTERONE DECREASED
     Dosage: ONE 1 PER DAY TRANSDERMAL
     Route: 062
     Dates: start: 20080718, end: 20080729

REACTIONS (2)
  - APPLICATION SITE BURN [None]
  - APPLICATION SITE RASH [None]
